FAERS Safety Report 8113011-X (Version None)
Quarter: 2012Q1

REPORT INFORMATION
  Report Type: 
  Country: None (occurrence: None)
  Receive Date: 20120203
  Receipt Date: 20120123
  Transmission Date: 20120608
  Serious: No
  Sender: FDA-Public Use
  Company Number: US-ELI_LILLY_AND_COMPANY-US201007005354

PATIENT
  Sex: Male
  Weight: 131.97 kg

DRUGS (15)
  1. WELLBUTRIN [Concomitant]
  2. FORTEO [Suspect]
     Dosage: 20 UG, QD
  3. EXFORGE [Concomitant]
  4. SYNTHROID [Concomitant]
  5. SIMVASTATIN [Concomitant]
  6. CO Q10 [Concomitant]
  7. METFORMIN HCL [Concomitant]
  8. CAL D [Concomitant]
  9. BECONASE AQ [Concomitant]
  10. ASPIRIN [Concomitant]
  11. NIACIN [Concomitant]
  12. FORTEO [Suspect]
     Indication: OSTEOPOROSIS
     Dosage: 20 UG, DAILY (1/D)
     Dates: start: 20091201
  13. ASCORBIC ACID [Concomitant]
  14. PROAIR HFA [Concomitant]
  15. ANTIVIRALS [Concomitant]

REACTIONS (4)
  - HERPES ZOSTER [None]
  - INJECTION SITE ERYTHEMA [None]
  - ELECTROCARDIOGRAM ABNORMAL [None]
  - PAIN [None]
